FAERS Safety Report 9528624 (Version 1)
Quarter: 2013Q3

REPORT INFORMATION
  Report Type: Report from Study
  Country: CA (occurrence: CA)
  Receive Date: 20130917
  Receipt Date: 20130917
  Transmission Date: 20140515
  Serious: Yes (Hospitalization, Other)
  Sender: FDA-Public Use
  Company Number: CA-ROCHE-1273955

PATIENT
  Age: 71 Year
  Sex: Male
  Weight: 86.2 kg

DRUGS (4)
  1. RANIBIZUMAB [Suspect]
     Indication: PRODUCT USED FOR UNKNOWN INDICATION
     Route: 050
     Dates: start: 20121102
  2. RANIBIZUMAB [Suspect]
     Route: 050
     Dates: start: 20130116
  3. LIPITOR [Concomitant]
  4. ASA [Concomitant]

REACTIONS (2)
  - Lung neoplasm malignant [Unknown]
  - Pain [Unknown]
